FAERS Safety Report 5535428-X (Version None)
Quarter: 2007Q4

REPORT INFORMATION
  Report Type: 
  Country: None (occurrence: None)
  Receive Date: 20071206
  Receipt Date: 20071130
  Transmission Date: 20080405
  Serious: Yes (Other)
  Sender: FDA-Public Use
  Company Number: US-BRISTOL-MYERS SQUIBB COMPANY-13990783

PATIENT
  Age: 57 Year
  Sex: Female

DRUGS (3)
  1. ORENCIA [Suspect]
     Indication: RHEUMATOID ARTHRITIS
  2. METHOTREXATE [Concomitant]
  3. PREDNISONE TAB [Concomitant]

REACTIONS (5)
  - CEREBRAL HAEMORRHAGE [None]
  - HERPES ZOSTER [None]
  - HYPERTENSIVE CRISIS [None]
  - MUSCULOSKELETAL PAIN [None]
  - PERIARTHRITIS [None]
